FAERS Safety Report 8016628-6 (Version None)
Quarter: 2011Q4

REPORT INFORMATION
  Report Type: 
  Country: None (occurrence: None)
  Receive Date: 20111231
  Receipt Date: 20111220
  Transmission Date: 20120403
  Serious: Yes (Hospitalization)
  Sender: FDA-Public Use
  Company Number: PHHY2011JP111311

PATIENT

DRUGS (4)
  1. CYCLOSPORINE [Suspect]
     Dosage: MATERNAL DOSE: 60 MG
     Route: 064
  2. HYDRALAZINE HYDROCHLORIDE [Suspect]
     Route: 064
  3. PREDNISOLONE [Concomitant]
  4. HYDRALAZINE HYDROCHLORIDE [Suspect]
     Dosage: MATERNAL DOSE: 6 MG
     Route: 064

REACTIONS (2)
  - FOETAL EXPOSURE DURING PREGNANCY [None]
  - LOW BIRTH WEIGHT BABY [None]
